FAERS Safety Report 13233683 (Version 5)
Quarter: 2018Q2

REPORT INFORMATION
  Report Type: Report from Study
  Country: JP (occurrence: JP)
  Receive Date: 20170215
  Receipt Date: 20180404
  Transmission Date: 20180711
  Serious: Yes (Hospitalization)
  Sender: FDA-Public Use
  Company Number: JP-ROCHE-1893370

PATIENT
  Age: 8 Year
  Sex: Male

DRUGS (22)
  1. CALONAL [Concomitant]
     Active Substance: ACETAMINOPHEN
     Dosage: PREMEDICATION
     Route: 048
     Dates: start: 20171013, end: 20171013
  2. METHYLPREDNISOLONE. [Concomitant]
     Active Substance: METHYLPREDNISOLONE
     Dosage: PREMEDICATION
     Route: 042
     Dates: start: 20160204, end: 20160204
  3. BAKTAR [Concomitant]
     Active Substance: SULFAMETHOXAZOLE\TRIMETHOPRIM
     Indication: PROPHYLAXIS
     Route: 048
     Dates: start: 20160203
  4. MIZORIBINE [Suspect]
     Active Substance: MIZORIBINE
     Indication: NEPHROTIC SYNDROME
     Route: 048
  5. POLARAMINE [Concomitant]
     Active Substance: DEXCHLORPHENIRAMINE MALEATE
     Dosage: PREMEDICATION,
     Route: 048
     Dates: start: 20160909, end: 20160909
  6. RITUXIMAB. [Suspect]
     Active Substance: RITUXIMAB
     Route: 042
     Dates: start: 20170328, end: 20170328
  7. METHYLPREDNISOLONE. [Concomitant]
     Active Substance: METHYLPREDNISOLONE
     Dosage: PREMEDICATION
     Route: 042
     Dates: start: 20170328, end: 20170328
  8. CALONAL [Concomitant]
     Active Substance: ACETAMINOPHEN
     Dosage: PREMEDICATION
     Route: 048
     Dates: start: 20170328, end: 20170328
  9. METHYLPREDNISOLONE. [Concomitant]
     Active Substance: METHYLPREDNISOLONE
     Dosage: PREMEDICATION
     Route: 042
     Dates: start: 20160909, end: 20160909
  10. POLARAMINE [Concomitant]
     Active Substance: DEXCHLORPHENIRAMINE MALEATE
     Dosage: PREMEDICATION
     Route: 042
     Dates: start: 20170328, end: 20170328
  11. NEORAL [Concomitant]
     Active Substance: CYCLOSPORINE
     Indication: NEPHROTIC SYNDROME
  12. RITUXIMAB. [Suspect]
     Active Substance: RITUXIMAB
     Indication: NEPHROTIC SYNDROME
     Route: 042
     Dates: start: 20160204, end: 20160204
  13. RITUXIMAB. [Suspect]
     Active Substance: RITUXIMAB
     Route: 042
     Dates: start: 20160909, end: 20160909
  14. RITUXIMAB. [Suspect]
     Active Substance: RITUXIMAB
     Route: 042
     Dates: start: 20171013, end: 20171013
  15. METHYLPREDNISOLONE. [Concomitant]
     Active Substance: METHYLPREDNISOLONE
     Dosage: PREMEDICATION
     Route: 042
     Dates: start: 20171013, end: 20171013
  16. CALONAL [Concomitant]
     Active Substance: ACETAMINOPHEN
     Route: 048
     Dates: start: 20160204, end: 20160204
  17. PREDONINE [Concomitant]
     Active Substance: PREDNISOLONE
     Indication: NEPHROTIC SYNDROME
     Route: 065
     Dates: end: 20160310
  18. CICLOSPORIN [Suspect]
     Active Substance: CYCLOSPORINE
     Indication: NEPHROTIC SYNDROME
     Route: 048
  19. CALONAL [Concomitant]
     Active Substance: ACETAMINOPHEN
     Route: 048
     Dates: start: 20160909, end: 20160909
  20. POLARAMINE [Concomitant]
     Active Substance: DEXCHLORPHENIRAMINE MALEATE
     Dosage: PREMEDICATION,
     Route: 048
     Dates: start: 20160204, end: 20160204
  21. POLARAMINE [Concomitant]
     Active Substance: DEXCHLORPHENIRAMINE MALEATE
     Dosage: PREMEDICATION
     Route: 042
     Dates: start: 20171013, end: 20171013
  22. BREDININ [Concomitant]
     Active Substance: MIZORIBINE
     Indication: NEPHROTIC SYNDROME
     Route: 048

REACTIONS (4)
  - Influenza [Recovered/Resolved]
  - Febrile neutropenia [Recovered/Resolved]
  - Upper respiratory tract inflammation [Recovered/Resolved]
  - Vernal keratoconjunctivitis [Recovered/Resolved]

NARRATIVE: CASE EVENT DATE: 20160308
